FAERS Safety Report 4382470-0 (Version None)
Quarter: 2004Q2

REPORT INFORMATION
  Report Type: 
  Country: None (occurrence: None)
  Receive Date: 20040621
  Receipt Date: 20040621
  Transmission Date: 20050107
  Serious: Yes (Death)
  Sender: FDA-Public Use
  Company Number: None

PATIENT
  Age: 44 Year
  Sex: Male
  Weight: 156.0374 kg

DRUGS (6)
  1. IRESSA [Suspect]
     Indication: LUNG NEOPLASM MALIGNANT
     Dosage: 250 MG ORAL
     Route: 048
     Dates: start: 20030609, end: 20031020
  2. CELEBREX [Suspect]
     Indication: LUNG NEOPLASM MALIGNANT
     Dosage: 400 MG ORAL
     Route: 048
     Dates: start: 20030609, end: 20031020
  3. OXYCONTIN [Concomitant]
  4. DILAUDID [Concomitant]
  5. DURAGESIC [Concomitant]
  6. TYLENOL [Concomitant]

REACTIONS (3)
  - HIP FRACTURE [None]
  - MALIGNANT NEOPLASM PROGRESSION [None]
  - METASTASES TO CENTRAL NERVOUS SYSTEM [None]
